FAERS Safety Report 5357195-5 (Version None)
Quarter: 2007Q2

REPORT INFORMATION
  Report Type: 
  Country: None (occurrence: None)
  Receive Date: 20070612
  Receipt Date: 20070612
  Transmission Date: 20071010
  Serious: Yes (Other)
  Sender: FDA-Public Use
  Company Number: None

PATIENT
  Age: 52 Year
  Sex: Female
  Weight: 143.3367 kg

DRUGS (1)
  1. AVANDIA [Suspect]
     Indication: DIABETES MELLITUS
     Dosage: 40 MILLIGRAMS 2 X DAILY PO
     Route: 048
     Dates: start: 20060210, end: 20060901

REACTIONS (4)
  - CHEST PAIN [None]
  - DYSPNOEA EXERTIONAL [None]
  - WEIGHT DECREASED [None]
  - WEIGHT INCREASED [None]
